FAERS Safety Report 23259346 (Version 1)
Quarter: 2023Q4

REPORT INFORMATION
  Report Type: Report from Study
  Country: IQ (occurrence: IQ)
  Receive Date: 20231204
  Receipt Date: 20231204
  Transmission Date: 20240110
  Serious: Yes (Death, Other)
  Sender: FDA-Public Use
  Company Number: IQ-PFIZER INC-PV202300083040

PATIENT
  Age: 64 Year
  Sex: Male

DRUGS (1)
  1. TAFAMIDIS [Suspect]
     Active Substance: TAFAMIDIS
     Indication: Cardiac amyloidosis
     Dosage: 61 MG, 1X/DAY
     Dates: start: 20221224

REACTIONS (13)
  - Death [Fatal]
  - Neuropathy peripheral [Unknown]
  - Myocardial infarction [Unknown]
  - Diarrhoea [Unknown]
  - Weight decreased [Unknown]
  - Paraesthesia [Unknown]
  - Cardiac disorder [Recovered/Resolved]
  - Dizziness postural [Unknown]
  - Gait disturbance [Unknown]
  - Muscular weakness [Unknown]
  - N-terminal prohormone brain natriuretic peptide increased [Unknown]
  - Blood glucose increased [Unknown]
  - Blood urea increased [Unknown]

NARRATIVE: CASE EVENT DATE: 20230530
